FAERS Safety Report 24100264 (Version 1)
Quarter: 2024Q3

REPORT INFORMATION
  Report Type: Spontaneous
  Country: US (occurrence: US)
  Receive Date: 20240717
  Receipt Date: 20240717
  Transmission Date: 20241017
  Serious: No
  Sender: NOVO NORDISK
  Company Number: US-NOVOPROD-1207894

PATIENT
  Age: 77 Year
  Sex: Male

DRUGS (5)
  1. OZEMPIC [Suspect]
     Active Substance: SEMAGLUTIDE
     Indication: Product used for unknown indication
     Dosage: UNKNOWN
     Route: 058
  2. OFEV [Suspect]
     Active Substance: NINTEDANIB
     Dosage: 300 MG
     Route: 048
     Dates: start: 20220322
  3. OFEV [Suspect]
     Active Substance: NINTEDANIB
     Indication: Idiopathic pulmonary fibrosis
     Dosage: 300 MG ( 150MG, 1 IN 12 HRS)
     Route: 048
     Dates: start: 20220303
  4. OFEV [Suspect]
     Active Substance: NINTEDANIB
     Dosage: 300 MG
     Route: 048
     Dates: start: 20220323
  5. PREDNISONE [Concomitant]
     Active Substance: PREDNISONE
     Indication: Product used for unknown indication
     Dosage: UNKNOWN
     Route: 048

REACTIONS (22)
  - Supraventricular tachycardia [Unknown]
  - COVID-19 [Unknown]
  - Nausea [Not Recovered/Not Resolved]
  - Constipation [Not Recovered/Not Resolved]
  - Back pain [Not Recovered/Not Resolved]
  - Ageusia [Not Recovered/Not Resolved]
  - Taste disorder [Not Recovered/Not Resolved]
  - Sleep apnoea syndrome [Unknown]
  - Constipation [Unknown]
  - Dysgeusia [Unknown]
  - Post-traumatic pain [Unknown]
  - Wrong dose [Unknown]
  - Oxygen saturation decreased [Unknown]
  - Neuropathy peripheral [Unknown]
  - COVID-19 [Unknown]
  - Blood glucose increased [Unknown]
  - Frustration tolerance decreased [Unknown]
  - Diarrhoea [Unknown]
  - Vomiting [Unknown]
  - Abdominal distension [Not Recovered/Not Resolved]
  - Inappropriate schedule of product administration [Not Recovered/Not Resolved]
  - Wrong dose [Not Recovered/Not Resolved]

NARRATIVE: CASE EVENT DATE: 20220101
